FAERS Safety Report 6831982-6 (Version None)
Quarter: 2010Q3

REPORT INFORMATION
  Report Type: 
  Country: None (occurrence: None)
  Receive Date: 20100712
  Receipt Date: 20100630
  Transmission Date: 20110219
  Serious: Yes (Other)
  Sender: FDA-Public Use
  Company Number: DK-PFIZER INC-2010086403

PATIENT
  Age: 42 Year
  Sex: Female

DRUGS (2)
  1. DIFLUCAN [Suspect]
     Dosage: 150 MG, SINGLE DOSE
     Dates: start: 20100515, end: 20100515
  2. DIFLUCAN [Suspect]
     Dosage: 150 MG, SINGLE DOSE
     Dates: start: 20100522, end: 20100522

REACTIONS (1)
  - ABORTION SPONTANEOUS [None]
